FAERS Safety Report 5350625-4 (Version None)
Quarter: 2007Q2

REPORT INFORMATION
  Report Type: 
  Country: None (occurrence: None)
  Receive Date: 20070608
  Receipt Date: 20070605
  Transmission Date: 20071010
  Serious: Yes (Other)
  Sender: FDA-Public Use
  Company Number: CA-ROCHE-500832

PATIENT
  Age: 45 Year
  Sex: Female

DRUGS (6)
  1. CLONAZEPAM [Suspect]
     Indication: DRUG USE FOR UNKNOWN INDICATION
     Route: 065
  2. LYRICA [Suspect]
     Indication: DRUG USE FOR UNKNOWN INDICATION
     Route: 048
  3. ZANAFLEX [Concomitant]
     Route: 048
  4. SYNTHROID [Concomitant]
     Route: 048
  5. CIPRALEX [Concomitant]
     Route: 048
  6. XENICAL [Concomitant]

REACTIONS (1)
  - CONVULSION [None]
